FAERS Safety Report 26142791 (Version 2)
Quarter: 2025Q4

REPORT INFORMATION
  Report Type: Spontaneous
  Country: EU (occurrence: EU)
  Receive Date: 20251211
  Receipt Date: 20251223
  Transmission Date: 20260118
  Serious: Yes (Other)
  Sender: ABBVIE
  Company Number: EU-ABBVIE-6582323

PATIENT
  Age: 67 Year

DRUGS (1)
  1. RINVOQ [Suspect]
     Active Substance: UPADACITINIB
     Indication: Dermatitis atopic
     Route: 048
     Dates: start: 20230724

REACTIONS (2)
  - Transitional cell carcinoma [Unknown]
  - Nephroureterectomy [Unknown]

NARRATIVE: CASE EVENT DATE: 20250307
